FAERS Safety Report 8189777-X (Version None)
Quarter: 2012Q1

REPORT INFORMATION
  Report Type: 
  Country: None (occurrence: None)
  Receive Date: 20120307
  Receipt Date: 20110204
  Transmission Date: 20120608
  Serious: No
  Sender: FDA-Public Use
  Company Number: US-GLAXOSMITHKLINE-A0911994A

PATIENT
  Sex: Male

DRUGS (6)
  1. REQUIP [Suspect]
     Indication: RESTLESS LEGS SYNDROME
     Dosage: 4MG SEE DOSAGE TEXT
     Route: 048
     Dates: start: 20080201, end: 20081201
  2. VENLAFAXINE [Concomitant]
  3. VITAMIN TAB [Concomitant]
  4. ROPINIROLE [Suspect]
     Indication: RESTLESS LEGS SYNDROME
     Dosage: 4MG FOUR TIMES PER DAY
     Route: 048
     Dates: start: 20090101, end: 20100301
  5. PRANDIN [Concomitant]
  6. NEXIUM [Concomitant]

REACTIONS (1)
  - PATHOLOGICAL GAMBLING [None]
